FAERS Safety Report 19499162 (Version 1)
Quarter: 2021Q3

REPORT INFORMATION
  Report Type: Spontaneous
  Country: US (occurrence: US)
  Receive Date: 20210707
  Receipt Date: 20210707
  Transmission Date: 20211014
  Serious: Yes (Hospitalization, Other)
  Sender: FDA-Public Use
  Company Number: US-SHILPA MEDICARE LIMITED-SML-US-2021-00852

PATIENT
  Age: 54 Year
  Sex: Female

DRUGS (3)
  1. AZACITIDINE, UNKNOWN [Suspect]
     Active Substance: AZACITIDINE
     Indication: MYELODYSPLASTIC SYNDROME
     Route: 065
  2. VENRTOCLAX [Suspect]
     Active Substance: VENETOCLAX
     Indication: MYELODYSPLASTIC SYNDROME
     Route: 065
  3. PREDNISONE. [Suspect]
     Active Substance: PREDNISONE
     Indication: DIFFUSE ALVEOLAR DAMAGE
     Dosage: HIGH DOSE
     Route: 065

REACTIONS (7)
  - Anaemia [Unknown]
  - Myalgia [Unknown]
  - Thrombocytopenia [Unknown]
  - Diffuse alveolar damage [Unknown]
  - Fatigue [Unknown]
  - Cardiac failure [Unknown]
  - Chills [Unknown]
